FAERS Safety Report 7341877-X (Version None)
Quarter: 2011Q1

REPORT INFORMATION
  Report Type: 
  Country: None (occurrence: None)
  Receive Date: 20110309
  Receipt Date: 20110304
  Transmission Date: 20110831
  Serious: Yes (Other)
  Sender: FDA-Public Use
  Company Number: GB-ABBOTT-10P-167-0679905-00

PATIENT
  Sex: Female

DRUGS (10)
  1. ETANERCEPT [Suspect]
     Indication: PRODUCT USED FOR UNKNOWN INDICATION
     Route: 065
     Dates: start: 20091103
  2. AMITRIPTYLINE [Concomitant]
     Indication: MUSCLE RELAXANT THERAPY
     Dosage: NOCTE TO PRESENT
     Route: 048
     Dates: start: 20040501
  3. LEVOTHYROXINE SODIUM [Concomitant]
     Indication: THYROID DISORDER
     Dosage: TO PRESENT
     Route: 048
     Dates: start: 19990101
  4. DICLOFENAC [Suspect]
     Indication: RHEUMATOID ARTHRITIS
     Route: 048
     Dates: start: 20080101
  5. FOLIC ACID [Concomitant]
     Indication: RHEUMATOID ARTHRITIS
     Dosage: TO PRESENT
     Route: 048
     Dates: start: 20040601
  6. METHOTREXATE [Concomitant]
     Indication: RHEUMATOID ARTHRITIS
     Dosage: TO PRESENT
     Route: 048
     Dates: start: 20040601
  7. HUMIRA [Suspect]
     Indication: RHEUMATOID ARTHRITIS
     Route: 058
     Dates: start: 20100223, end: 20101011
  8. AMITRIPTYLINE [Concomitant]
     Indication: RHEUMATOID ARTHRITIS
  9. TRAMADOL HCL [Concomitant]
     Indication: PAIN PROPHYLAXIS
     Dosage: PRN TO PRESENT
     Route: 048
     Dates: start: 20040101
  10. TRAMADOL HCL [Concomitant]
     Indication: RHEUMATOID ARTHRITIS

REACTIONS (1)
  - RECTAL HAEMORRHAGE [None]
